FAERS Safety Report 10281159 (Version 3)
Quarter: 2014Q3

REPORT INFORMATION
  Report Type: Spontaneous
  Country: US (occurrence: US)
  Receive Date: 20140707
  Receipt Date: 20140912
  Transmission Date: 20150326
  Serious: No
  Sender: FDA-Public Use
  Company Number: US-AMGEN-USASP2014040928

PATIENT
  Age: 65 Year
  Sex: Female
  Weight: 84.35 kg

DRUGS (14)
  1. SEREVENT [Concomitant]
     Active Substance: SALMETEROL XINAFOATE
     Dosage: 50 MUG, BID 1 PUFF BY INHALATION 2 TIMES DAILY
     Dates: start: 20100611
  2. PREDNISONE. [Concomitant]
     Active Substance: PREDNISONE
     Dosage: 20MG QDX5DAYS, THEN 15MG QDX5DAYS, THEN 10MG QDX5DAYS, THEN 5 MG DAILY
     Dates: start: 20140513
  3. SPIRIVA [Concomitant]
     Active Substance: TIOTROPIUM BROMIDE MONOHYDRATE
     Dosage: 18 MUG, UNK
  4. ASPIRIN. [Concomitant]
     Active Substance: ASPIRIN
     Dosage: 1 TABLET BY MOUTH EVERY DAY
     Route: 048
  5. FLOVENT HFA [Concomitant]
     Active Substance: FLUTICASONE PROPIONATE
     Dosage: 220 MCG/ACT INHALE TWO PUFFS TWO TIMES DAILY AS NEEDED
     Dates: start: 20110322
  6. DOXEPIN [Concomitant]
     Active Substance: DOXEPIN
     Dosage: 25 MG, QD ONE CAPSULE BY MOUTH ONE TIME DAILY
     Route: 048
     Dates: start: 20101208
  7. CALCIUM CARBONATE AND VITAMIN D [Concomitant]
     Dosage: 600-400MG-UNIT 1 TABLET BY MOUTH TWO TIME DAILY
     Route: 048
     Dates: start: 20080117
  8. FOLIC ACID. [Concomitant]
     Active Substance: FOLIC ACID
     Dosage: 1 TABLET BY MOUTH EVERY DAY
     Route: 048
     Dates: start: 20131126
  9. METHOTREXATE [Concomitant]
     Active Substance: METHOTREXATE
     Dosage: 6 TABLETS ONCE A WEEK
     Route: 048
     Dates: start: 20140316
  10. PREDNISONE. [Concomitant]
     Active Substance: PREDNISONE
  11. LISINOPRIL. [Concomitant]
     Active Substance: LISINOPRIL
     Dosage: 10 MG, QD 1 TABLET BY MOUTH EVERYDAY PRN
     Route: 048
     Dates: start: 20091217
  12. ENBREL [Suspect]
     Active Substance: ETANERCEPT
     Indication: RHEUMATOID ARTHRITIS
     Dosage: 50 MG, QWK
     Route: 058
     Dates: start: 20140404
  13. ATORVASTATIN CALCIUM. [Concomitant]
     Active Substance: ATORVASTATIN CALCIUM
     Dosage: 1 TABLET BY MOUTH EVERY DAY
     Route: 048
  14. HYDROCHLOROTHIAZIDE. [Concomitant]
     Active Substance: HYDROCHLOROTHIAZIDE
     Dosage: 1 TABLET BY MOUTH EVERYDAY
     Route: 048
     Dates: start: 20101228

REACTIONS (7)
  - Synovial disorder [Unknown]
  - Arthralgia [Unknown]
  - Synovitis [Unknown]
  - Joint swelling [Unknown]
  - Hypoaesthesia [Unknown]
  - Condition aggravated [Recovered/Resolved]
  - Peripheral swelling [Recovered/Resolved]

NARRATIVE: CASE EVENT DATE: 201404
